FAERS Safety Report 16381323 (Version 1)
Quarter: 2019Q2

REPORT INFORMATION
  Report Type: Spontaneous
  Country: US (occurrence: US)
  Receive Date: 20190603
  Receipt Date: 20190603
  Transmission Date: 20190711
  Serious: No
  Sender: FDA-Public Use
  Company Number: US-TEVA-2019-US-1049104

PATIENT
  Age: 27 Year
  Sex: Female

DRUGS (2)
  1. DIAZEPAM TABLET USP [Suspect]
     Active Substance: DIAZEPAM
  2. DIAZEPAM TABLET USP [Suspect]
     Active Substance: DIAZEPAM
     Indication: ANXIETY
     Dates: start: 2014

REACTIONS (1)
  - Withdrawal syndrome [Unknown]

NARRATIVE: CASE EVENT DATE: 2014
